FAERS Safety Report 24331608 (Version 1)
Quarter: 2024Q3

REPORT INFORMATION
  Report Type: Spontaneous
  Country: IN (occurrence: IN)
  Receive Date: 20240918
  Receipt Date: 20240918
  Transmission Date: 20241017
  Serious: Yes (Hospitalization, Other)
  Sender: RANBAXY
  Company Number: IN-SUN PHARMACEUTICAL INDUSTRIES LTD-2024R1-468363

PATIENT
  Age: 8 Year
  Sex: Male

DRUGS (1)
  1. LEVALBUTEROL [Suspect]
     Active Substance: LEVALBUTEROL
     Indication: Asthma
     Dosage: UNK

REACTIONS (9)
  - Toxicity to various agents [Unknown]
  - Respiratory distress [Recovered/Resolved]
  - Tachycardia [Recovered/Resolved]
  - Hyperglycaemia [Unknown]
  - Tremor [Recovered/Resolved]
  - Hypokalaemia [Unknown]
  - Hyperglycaemia [Unknown]
  - Hyperlactacidaemia [Unknown]
  - Overdose [Unknown]
